FAERS Safety Report 4985892-X (Version None)
Quarter: 2006Q2

REPORT INFORMATION
  Report Type: 
  Country: None (occurrence: None)
  Receive Date: 20060419
  Receipt Date: 20060328
  Transmission Date: 20061013
  Serious: Yes (Other)
  Sender: FDA-Public Use
  Company Number: GB200603006747

PATIENT
  Age: 15 Year
  Sex: Male

DRUGS (2)
  1. STRATTERA [Suspect]
     Dosage: 0.25 MG/KG, DAILY (1/D)
  2. SERTRALINE [Concomitant]

REACTIONS (1)
  - GRAND MAL CONVULSION [None]
